FAERS Safety Report 6242564-1 (Version None)
Quarter: 2009Q2

REPORT INFORMATION
  Report Type: 
  Country: None (occurrence: None)
  Receive Date: 20090624
  Receipt Date: 20090611
  Transmission Date: 20091009
  Serious: Yes (Hospitalization)
  Sender: FDA-Public Use
  Company Number: FR-ELI_LILLY_AND_COMPANY-FR200905001122

PATIENT
  Age: 83 Year
  Sex: Female

DRUGS (6)
  1. FORTEO [Suspect]
     Indication: OSTEOPOROSIS
     Dosage: 20 UG, DAILY (1/D)
     Route: 058
     Dates: start: 20080214
  2. LYRICA [Concomitant]
  3. PERINDOPRIL ERBUMINE [Concomitant]
     Dosage: 8 MG, DAILY (1/D)
     Route: 048
  4. AMLODIPINE [Concomitant]
     Dosage: 5 MG, DAILY (1/D)
     Route: 048
  5. PLAVIX [Concomitant]
     Dosage: 1 D/F, DAILY (1/D)
     Route: 065
  6. CORDARONE [Concomitant]
     Dosage: 1 D/F, OTHER (FIVE DAYS OUT OF SEVEN)
     Route: 048

REACTIONS (5)
  - CONFUSIONAL STATE [None]
  - FALL [None]
  - MALAISE [None]
  - PELVIC PAIN [None]
  - RENAL FAILURE [None]
